FAERS Safety Report 4669922-0 (Version None)
Quarter: 2005Q2

REPORT INFORMATION
  Report Type: 
  Country: None (occurrence: None)
  Receive Date: 20050523
  Receipt Date: 20050519
  Transmission Date: 20051028
  Serious: Yes (Other)
  Sender: FDA-Public Use
  Company Number: PHBS2005BE07114

PATIENT
  Age: 50 Year
  Sex: Male

DRUGS (5)
  1. LAMISIL [Suspect]
     Indication: NAIL TINEA
     Dosage: 250 MG, QD
     Route: 048
     Dates: start: 20050201
  2. DIOVAN [Concomitant]
  3. TRAZOLAN [Concomitant]
  4. CIPRAMIL [Concomitant]
  5. LORMETAZEPAM [Concomitant]

REACTIONS (2)
  - HYPOKINESIA [None]
  - MYOPATHY [None]
